FAERS Safety Report 5736930-8 (Version None)
Quarter: 2008Q2

REPORT INFORMATION
  Report Type: 
  Country: None (occurrence: None)
  Receive Date: 20080509
  Receipt Date: 20080428
  Transmission Date: 20081010
  Serious: Yes (Other)
  Sender: FDA-Public Use
  Company Number: GXKR2008NL04086

PATIENT
  Age: 33 Year
  Sex: Male
  Weight: 63 kg

DRUGS (2)
  1. CITALOPRAM SANDOZ (NGX)(CITALOPRAM) FILM-COATED TABLET, 40MG [Suspect]
     Indication: DEPRESSION
     Dosage: 40 MG, ORAL
     Route: 048
     Dates: start: 20080129, end: 20080312
  2. LORMETAZEPAM (LORMETAZEPAM) [Concomitant]

REACTIONS (7)
  - DECREASED APPETITE [None]
  - DEPRESSION [None]
  - DRUG LEVEL CHANGED [None]
  - DRUG LEVEL DECREASED [None]
  - HEADACHE [None]
  - PHARMACEUTICAL PRODUCT COMPLAINT [None]
  - SOMNOLENCE [None]
